FAERS Safety Report 5031153-2 (Version None)
Quarter: 2006Q2

REPORT INFORMATION
  Report Type: 
  Country: None (occurrence: None)
  Receive Date: 20060505
  Receipt Date: 20051129
  Transmission Date: 20061013
  Serious: Yes (Life-Threatening, Hospitalization)
  Sender: FDA-Public Use
  Company Number: 0511035

PATIENT
  Sex: Male
  Weight: 108.8633 kg

DRUGS (1)
  1. HESPAN, 500ML, B. BRAUN MEDICAL INC. [Suspect]
     Indication: FLUID RETENTION
     Dosage: 500ML, I.V.
     Route: 042

REACTIONS (1)
  - ANAPHYLACTOID REACTION [None]
